FAERS Safety Report 8140548-X (Version None)
Quarter: 2012Q1

REPORT INFORMATION
  Report Type: 
  Country: None (occurrence: None)
  Receive Date: 20120216
  Receipt Date: 20120213
  Transmission Date: 20120608
  Serious: Yes (Congenital Anomaly, Other)
  Sender: FDA-Public Use
  Company Number: US-PFIZER INC-2011089749

PATIENT
  Sex: Female
  Weight: 3 kg

DRUGS (5)
  1. TYLENOL PM [Concomitant]
     Dosage: UNK
     Route: 064
     Dates: start: 20060715
  2. ZOLOFT [Suspect]
     Dosage: 100 MG, UNK
     Route: 064
     Dates: start: 20040730
  3. ZOLOFT [Suspect]
     Indication: DEPRESSION
     Dosage: 50 MG, UNK
     Route: 064
     Dates: start: 20030903
  4. ZOLOFT [Suspect]
     Dosage: 100 MG, UNK
     Route: 064
     Dates: start: 20060715
  5. MULTI-VITAMINS [Concomitant]
     Dosage: UNK
     Route: 064
     Dates: start: 20060714

REACTIONS (3)
  - TALIPES [None]
  - MATERNAL EXPOSURE TIMING UNSPECIFIED [None]
  - CAESAREAN SECTION [None]
